FAERS Safety Report 8828933 (Version 2)
Quarter: 2012Q4

REPORT INFORMATION
  Report Type: 
  Country: SE (occurrence: SE)
  Receive Date: 20121008
  Receipt Date: 20121023
  Transmission Date: 20130627
  Serious: Yes (Hospitalization)
  Sender: FDA-Public Use
  Company Number: SE-ROCHE-1141854

PATIENT
  Age: 45 Year
  Sex: Male

DRUGS (4)
  1. PEGASYS [Suspect]
     Indication: HEPATITIS
     Route: 048
     Dates: start: 20120627, end: 20120725
  2. COPEGUS [Interacting]
     Indication: HEPATITIS
     Route: 065
     Dates: start: 20120627, end: 20120725
  3. COPEGUS [Interacting]
     Route: 065
  4. INCIVO [Interacting]
     Indication: HEPATITIS
     Route: 065
     Dates: start: 20120627, end: 20120725

REACTIONS (1)
  - Renal failure acute [Recovered/Resolved]
